FAERS Safety Report 8535468-2 (Version None)
Quarter: 2012Q3

REPORT INFORMATION
  Report Type: 
  Country: None (occurrence: None)
  Receive Date: 20120718
  Receipt Date: 20120718
  Transmission Date: 20120928
  Serious: No
  Sender: FDA-Public Use
  Company Number: None

PATIENT
  Sex: Female

DRUGS (1)
  1. TRIMETHOPRIM [Suspect]
     Indication: EYE INFECTION
     Dosage: 4 DROPS PER DAY
     Route: 047
     Dates: start: 20120522, end: 20120531

REACTIONS (5)
  - EYE SWELLING [None]
  - LACRIMATION INCREASED [None]
  - ABNORMAL SENSATION IN EYE [None]
  - OCULAR HYPERAEMIA [None]
  - EYE PAIN [None]
